FAERS Safety Report 9162087 (Version 1)
Quarter: 2013Q1

REPORT INFORMATION
  Report Type: Spontaneous
  Country: GR (occurrence: None)
  Receive Date: 20130222
  Receipt Date: 20130222
  Transmission Date: 20140127
  Serious: Yes (Hospitalization, Other)
  Sender: FDA-Public Use
  Company Number: 2013P1002328

PATIENT
  Age: 24 Year
  Sex: Male

DRUGS (3)
  1. RISPERIDONE [Suspect]
     Indication: PSYCHOMOTOR SKILLS IMPAIRED
  2. VALPROATE SODIUM [Suspect]
     Indication: EPILEPSY
  3. CEFPROZIL [Concomitant]

REACTIONS (6)
  - Pyrexia [None]
  - Pleural effusion [None]
  - Lupus-like syndrome [None]
  - Hypoventilation [None]
  - Red blood cell sedimentation rate increased [None]
  - C-reactive protein increased [None]
